FAERS Safety Report 21002894 (Version 1)
Quarter: 2022Q2

REPORT INFORMATION
  Report Type: Spontaneous
  Country: US (occurrence: US)
  Receive Date: 20220624
  Receipt Date: 20220624
  Transmission Date: 20220721
  Serious: Yes (Hospitalization, Other)
  Sender: FDA-Public Use
  Company Number: US-APOTEX-2022AP009497

PATIENT
  Age: 36 Year
  Sex: Female

DRUGS (8)
  1. ONDANSETRON [Interacting]
     Active Substance: ONDANSETRON
     Indication: Nausea
     Dosage: UNK
     Route: 065
  2. ONDANSETRON [Interacting]
     Active Substance: ONDANSETRON
     Indication: Vomiting
  3. SERTRALINE [Interacting]
     Active Substance: SERTRALINE HYDROCHLORIDE
     Indication: Depression
     Dosage: 50 MILLIGRAM, QD
     Route: 065
  4. BUSPIRONE [Interacting]
     Active Substance: BUSPIRONE HYDROCHLORIDE
     Indication: Antipsychotic therapy
     Dosage: 30 MILLIGRAM, BID
     Route: 065
  5. LURASIDONE [Interacting]
     Active Substance: LURASIDONE
     Indication: Antipsychotic therapy
     Dosage: 80 MILLIGRAM, QD
     Route: 065
  6. LURASIDONE [Interacting]
     Active Substance: LURASIDONE
     Dosage: 120 MILLIGRAM, QD
     Route: 065
  7. CLONAZEPAM [Concomitant]
     Active Substance: CLONAZEPAM
     Indication: Antipsychotic therapy
     Dosage: 4 MILLIGRAM, QD
     Route: 065
  8. CAFFEINE [Concomitant]
     Active Substance: CAFFEINE
     Indication: Product used for unknown indication
     Dosage: UNK
     Route: 065

REACTIONS (4)
  - Serotonin syndrome [Recovered/Resolved]
  - Exposure during pregnancy [Unknown]
  - Self-medication [Unknown]
  - Drug interaction [Unknown]
